FAERS Safety Report 10681940 (Version 2)
Quarter: 2015Q2

REPORT INFORMATION
  Report Type: Spontaneous
  Country: US (occurrence: US)
  Receive Date: 20141230
  Receipt Date: 20150414
  Transmission Date: 20150821
  Serious: Yes (Hospitalization, Other)
  Sender: FDA-Public Use
  Company Number: US-BAYER-2014-190768

PATIENT
  Age: 27 Year
  Sex: Female
  Weight: 43.54 kg

DRUGS (2)
  1. MIRENA [Suspect]
     Active Substance: LEVONORGESTREL
     Indication: CONTRACEPTION
     Dosage: 20 MCG/24HR, CONT
     Route: 015
     Dates: start: 201109, end: 20121120
  2. DEPO-PROVERA [Concomitant]
     Active Substance: MEDROXYPROGESTERONE ACETATE

REACTIONS (7)
  - Device dislocation [None]
  - Genital haemorrhage [None]
  - Injury [None]
  - Device difficult to use [None]
  - Off label use [None]
  - Uterine perforation [None]
  - Abdominal pain [None]

NARRATIVE: CASE EVENT DATE: 201210
